FAERS Safety Report 12864808 (Version 3)
Quarter: 2016Q4

REPORT INFORMATION
  Report Type: Spontaneous
  Country: FR (occurrence: FR)
  Receive Date: 20161020
  Receipt Date: 20161209
  Transmission Date: 20170207
  Serious: Yes (Hospitalization, Other)
  Sender: FDA-Public Use
  Company Number: FR-ROCHE-1844067

PATIENT
  Age: 76 Year
  Sex: Female
  Weight: 44.5 kg

DRUGS (11)
  1. CORTANCYL [Concomitant]
     Active Substance: PREDNISONE
     Indication: RHEUMATOID ARTHRITIS
     Route: 048
  2. MABTHERA [Suspect]
     Active Substance: RITUXIMAB
     Dosage: THIRDCYCLE WITH TWO INFUSION
     Route: 041
     Dates: start: 201211
  3. MABTHERA [Suspect]
     Active Substance: RITUXIMAB
     Dosage: FOURTH CYCLE
     Route: 041
     Dates: start: 201307
  4. MABTHERA [Suspect]
     Active Substance: RITUXIMAB
     Dosage: (AT THE DOSE OF 500 MG BECAUSE OF THE PATIENT^S WEIGHT AND DECREASE OF GAMMA?GLOBULINS)
     Route: 041
     Dates: start: 201606
  5. MABTHERA [Suspect]
     Active Substance: RITUXIMAB
     Indication: RHEUMATOID ARTHRITIS
     Route: 041
     Dates: start: 201604
  6. MABTHERA [Suspect]
     Active Substance: RITUXIMAB
     Dosage: FIRST CYCLE
     Route: 041
     Dates: start: 2011
  7. MABTHERA [Suspect]
     Active Substance: RITUXIMAB
     Dosage: SIXTH CYCLE ONE INFUSION
     Route: 041
     Dates: start: 201408
  8. MABTHERA [Suspect]
     Active Substance: RITUXIMAB
     Dosage: SEVENTH CYCLE ONE INFUSION
     Route: 041
     Dates: start: 201503
  9. ARAVA [Concomitant]
     Active Substance: LEFLUNOMIDE
     Indication: RHEUMATOID ARTHRITIS
     Route: 048
  10. MABTHERA [Suspect]
     Active Substance: RITUXIMAB
     Dosage: FIFTH CYCLE
     Route: 041
     Dates: start: 201401
  11. MABTHERA [Suspect]
     Active Substance: RITUXIMAB
     Dosage: SECOND CYCLE WITH ONE INFUSION
     Route: 041
     Dates: start: 201205

REACTIONS (8)
  - Delirium [Not Recovered/Not Resolved]
  - Pain in extremity [Not Recovered/Not Resolved]
  - Balance disorder [Not Recovered/Not Resolved]
  - Fall [Unknown]
  - Memory impairment [Not Recovered/Not Resolved]
  - Urinary incontinence [Not Recovered/Not Resolved]
  - Cognitive disorder [Not Recovered/Not Resolved]
  - Fracture [Not Recovered/Not Resolved]

NARRATIVE: CASE EVENT DATE: 2015
